FAERS Safety Report 12226947 (Version 1)
Quarter: 2016Q1

REPORT INFORMATION
  Report Type: Spontaneous
  Country: US (occurrence: US)
  Receive Date: 20160331
  Receipt Date: 20160331
  Transmission Date: 20160526
  Serious: Yes (Other)
  Sender: FDA-Public Use
  Company Number: US-IPCA LABORATORIES LIMITED-IPC201603-000347

PATIENT
  Age: 63 Year
  Sex: Female
  Weight: 55.34 kg

DRUGS (3)
  1. PROPRANOLOL HYDROCHLORIDE. [Suspect]
     Active Substance: PROPRANOLOL HYDROCHLORIDE
     Dates: start: 20160120
  2. METFORMIN [Concomitant]
     Active Substance: METFORMIN HYDROCHLORIDE
     Indication: GLUCOSE TOLERANCE IMPAIRED
     Dates: start: 201506
  3. PROPRANOLOL HYDROCHLORIDE. [Suspect]
     Active Substance: PROPRANOLOL HYDROCHLORIDE

REACTIONS (11)
  - Drug withdrawal syndrome [Unknown]
  - Feeling cold [Unknown]
  - Cold sweat [Unknown]
  - Headache [Unknown]
  - Anxiety [Unknown]
  - Middle insomnia [Unknown]
  - Palpitations [Unknown]
  - Hypotension [Unknown]
  - Loss of consciousness [Recovered/Resolved]
  - Nervousness [Unknown]
  - Dry mouth [Unknown]

NARRATIVE: CASE EVENT DATE: 20160119
